FAERS Safety Report 15615365 (Version 3)
Quarter: 2019Q3

REPORT INFORMATION
  Report Type: Report from Study
  Country: None (occurrence: FR)
  Receive Date: 20181114
  Receipt Date: 20190826
  Transmission Date: 20191004
  Serious: Yes (Hospitalization, Other)
  Sender: FDA-Public Use
  Company Number: FR-ABBVIE-18S-056-2548969-00

PATIENT
  Sex: Male
  Weight: 91 kg

DRUGS (1)
  1. DUODOPA [Suspect]
     Active Substance: CARBIDOPA\LEVODOPA
     Indication: PARKINSON^S DISEASE
     Dosage: 4.4 ML/H FROM 7:00 AM TO 10:00 PM
     Route: 050
     Dates: start: 20180613

REACTIONS (6)
  - Mental disorder [Unknown]
  - Depression [Unknown]
  - Suicide attempt [Unknown]
  - Freezing phenomenon [Unknown]
  - Unintentional medical device removal [Unknown]
  - Confusional state [Not Recovered/Not Resolved]

NARRATIVE: CASE EVENT DATE: 2018
